FAERS Safety Report 8574120-4 (Version None)
Quarter: 2012Q3

REPORT INFORMATION
  Report Type: 
  Country: None (occurrence: None)
  Receive Date: 20120806
  Receipt Date: 20120801
  Transmission Date: 20120928
  Serious: Yes (Other)
  Sender: FDA-Public Use
  Company Number: PHHY2012JP062165

PATIENT
  Age: 74 Year
  Sex: Male

DRUGS (6)
  1. NEORAL [Suspect]
     Indication: DERMATOMYOSITIS
     Dosage: 50 MG, DAILY
     Route: 048
     Dates: start: 20100407
  2. LANSOPRAZOLE [Concomitant]
     Route: 048
  3. PREDNISOLONE [Concomitant]
     Route: 048
  4. ALLOPURINOL [Concomitant]
     Route: 048
  5. ALENDRONATE SODIUM [Concomitant]
     Route: 048
  6. ZOLPIDEM [Concomitant]
     Route: 048

REACTIONS (2)
  - CAPILLARY DISORDER [None]
  - RASH MACULAR [None]
